FAERS Safety Report 19682089 (Version 2)
Quarter: 2021Q3

REPORT INFORMATION
  Report Type: Spontaneous
  Country: US (occurrence: US)
  Receive Date: 20210810
  Receipt Date: 20210923
  Transmission Date: 20211014
  Serious: No
  Sender: FDA-Public Use
  Company Number: US-JNJFOC-20210757458

PATIENT
  Age: 67 Year
  Sex: Male
  Weight: 124.85 kg

DRUGS (2)
  1. COVID?19 VACCINE [Concomitant]
     Indication: COVID-19 PROPHYLAXIS
     Route: 065
  2. TREMFYA [Suspect]
     Active Substance: GUSELKUMAB
     Indication: PSORIASIS
     Route: 058
     Dates: start: 20201027

REACTIONS (3)
  - Underdose [Unknown]
  - Device malfunction [Unknown]
  - Accidental exposure to product [Unknown]

NARRATIVE: CASE EVENT DATE: 20210728
